FAERS Safety Report 20180812 (Version 2)
Quarter: 2021Q4

REPORT INFORMATION
  Report Type: Spontaneous
  Country: CI (occurrence: None)
  Receive Date: 20211214
  Receipt Date: 20211218
  Transmission Date: 20220303
  Serious: Yes (Other)
  Sender: FDA-Public Use
  Company Number: CI-ROCHE-2976954

PATIENT
  Age: 8 Year
  Sex: Male
  Weight: 25 kg

DRUGS (1)
  1. HEMLIBRA [Suspect]
     Active Substance: EMICIZUMAB-KXWH
     Indication: Factor VIII deficiency
     Route: 065

REACTIONS (3)
  - Traumatic haemorrhage [Unknown]
  - Fall [Unknown]
  - Haemorrhage [Unknown]

NARRATIVE: CASE EVENT DATE: 20210810
